FAERS Safety Report 24959775 (Version 1)
Quarter: 2025Q1

REPORT INFORMATION
  Report Type: Spontaneous
  Country: US (occurrence: None)
  Receive Date: 20250212
  Receipt Date: 20250212
  Transmission Date: 20250408
  Serious: Yes (Hospitalization)
  Sender: FDA-CTU
  Company Number: None

PATIENT
  Age: 10 Year
  Sex: Female
  Weight: 33.8 kg

DRUGS (18)
  1. CALASPARGASE PEGOL [Suspect]
     Active Substance: CALASPARGASE PEGOL
     Dates: end: 20231129
  2. CYCLOPHOSPHAMIDE [Suspect]
     Active Substance: CYCLOPHOSPHAMIDE
     Dates: end: 20240117
  3. CYTARABINE [Suspect]
     Active Substance: CYTARABINE
     Dates: end: 20240127
  4. DAUNORUBICIN [Suspect]
     Active Substance: DAUNORUBICIN
     Dates: end: 20230609
  5. DEXAMETHASONE [Suspect]
     Active Substance: DEXAMETHASONE
     Dates: end: 20231208
  6. ZINECARD [Suspect]
     Active Substance: DEXRAZOXANE HYDROCHLORIDE
     Dates: end: 20231220
  7. DOXORUBICIN HYDROCHLORIDE [Suspect]
     Active Substance: DOXORUBICIN HYDROCHLORIDE
     Dates: end: 20231220
  8. ETOPOSIDE [Suspect]
     Active Substance: ETOPOSIDE
     Dates: end: 20230630
  9. IFOSFAMIDE [Suspect]
     Active Substance: IFOSFAMIDE
     Dates: end: 20230608
  10. LEUCOVORIN CALCIUM [Suspect]
     Active Substance: LEUCOVORIN CALCIUM
     Dates: end: 20230630
  11. MERCAPTOPURINE [Suspect]
     Active Substance: MERCAPTOPURINE
     Dates: end: 20250101
  12. MESNA [Suspect]
     Active Substance: MESNA
     Dates: end: 20230609
  13. METHOTREXATE [Suspect]
     Active Substance: METHOTREXATE
     Dates: end: 20250101
  14. NEULASTA [Suspect]
     Active Substance: PEGFILGRASTIM
     Dates: end: 20230702
  15. PREDNISONE [Suspect]
     Active Substance: PREDNISONE
     Dates: end: 20230224
  16. GLEEVEC [Suspect]
     Active Substance: IMATINIB MESYLATE
     Dates: end: 20250114
  17. THIOGUANINE [Suspect]
     Active Substance: THIOGUANINE
     Dates: end: 20240130
  18. VINCRISTINE SULFATE [Suspect]
     Active Substance: VINCRISTINE SULFATE
     Dates: end: 20231220

REACTIONS (3)
  - Hyperleukocytosis [None]
  - Anaemia [None]
  - Thrombocytopenia [None]

NARRATIVE: CASE EVENT DATE: 20250211
